FAERS Safety Report 8769716 (Version 1)
Quarter: 2012Q4

REPORT INFORMATION
  Report Type: 
  Country: US (occurrence: US)
  Receive Date: 20120905
  Receipt Date: 20120905
  Transmission Date: 20130627
  Serious: Yes (Death)
  Sender: FDA-Public Use
  Company Number: US-MYLANLABS-2012S1017814

PATIENT
  Age: 45 Year
  Sex: Male

DRUGS (3)
  1. UNSPECIFIED INGREDIENT [Suspect]
     Indication: DRUG DETOXIFICATION
     Dosage: 22 mg/kg
     Route: 048
     Dates: end: 2006
  2. FENTANYL [Suspect]
     Route: 065
     Dates: end: 2006
  3. DIAZEPAM [Suspect]
     Route: 065
     Dates: end: 2006

REACTIONS (1)
  - Toxicity to various agents [Fatal]
